FAERS Safety Report 10236681 (Version 1)
Quarter: 2014Q2

REPORT INFORMATION
  Report Type: Spontaneous
  Country: US (occurrence: US)
  Receive Date: 20140613
  Receipt Date: 20140613
  Transmission Date: 20141212
  Serious: No
  Sender: FDA-Public Use
  Company Number: US-B.I. PHARMACEUTICALS,INC./RIDGEFIELD-2014-BI-26129BP

PATIENT
  Sex: Female

DRUGS (3)
  1. FLOMAX [Suspect]
     Indication: PRODUCT USED FOR UNKNOWN INDICATION
     Route: 065
  2. INLYTA [Concomitant]
     Dosage: 10 MG
     Route: 048
     Dates: start: 201309, end: 201310
  3. CETUXIMAB [Concomitant]
     Indication: SQUAMOUS CELL CARCINOMA OF HEAD AND NECK
     Route: 065
     Dates: start: 20131022, end: 20131022

REACTIONS (1)
  - Dizziness [Unknown]
